FAERS Safety Report 5304948-5 (Version None)
Quarter: 2007Q2

REPORT INFORMATION
  Report Type: 
  Country: None (occurrence: None)
  Receive Date: 20070423
  Receipt Date: 20070411
  Transmission Date: 20071010
  Serious: Yes (Other)
  Sender: FDA-Public Use
  Company Number: US-PFIZER INC-2007029528

PATIENT
  Sex: Female

DRUGS (1)
  1. CHANTIX [Suspect]

REACTIONS (6)
  - ANXIETY [None]
  - CHEST PAIN [None]
  - DYSGEUSIA [None]
  - DYSPNOEA [None]
  - PANIC ATTACK [None]
  - PARANOIA [None]
